FAERS Safety Report 11109331 (Version 1)
Quarter: 2015Q2

REPORT INFORMATION
  Report Type: Spontaneous
  Country: PT (occurrence: None)
  Receive Date: 20150511
  Receipt Date: 20150511
  Transmission Date: 20150821
  Serious: Yes (Hospitalization, Other)
  Sender: FDA-Public Use
  Company Number: PT2015GSK061986

PATIENT
  Age: 27 Year
  Sex: Female

DRUGS (5)
  1. LAMIVUDINE (LAMIVUDINE) UNKNOWN [Suspect]
     Active Substance: LAMIVUDINE
     Indication: VIRAL LOAD INCREASED
  2. STAVUDINE (STAVUDINE) [Suspect]
     Active Substance: STAVUDINE
     Indication: VIRAL LOAD INCREASED
  3. LOPINAVIR + RITONAVIR (LOPINAVIR + RITONAVIR) [Concomitant]
  4. LAMIVUDINE (LAMIVUDINE) UNKNOWN [Suspect]
     Active Substance: LAMIVUDINE
     Indication: HIV INFECTION
  5. STAVUDINE (STAVUDINE) [Suspect]
     Active Substance: STAVUDINE
     Indication: HIV INFECTION

REACTIONS (9)
  - Renal impairment [None]
  - Gamma-glutamyltransferase increased [None]
  - Lactic acidosis [None]
  - Vomiting [None]
  - Blood lactic acid increased [None]
  - Blood bicarbonate decreased [None]
  - Decreased appetite [None]
  - Asthenia [None]
  - Blood lactate dehydrogenase increased [None]
